FAERS Safety Report 12651220 (Version 1)
Quarter: 2016Q3

REPORT INFORMATION
  Report Type: Spontaneous
  Country: US (occurrence: US)
  Receive Date: 20160815
  Receipt Date: 20160815
  Transmission Date: 20161109
  Serious: Yes (Other)
  Sender: FDA-Public Use
  Company Number: US-PFIZER INC-2016297708

PATIENT
  Age: 56 Year
  Sex: Female
  Weight: 83.91 kg

DRUGS (13)
  1. EFFEXOR XR [Suspect]
     Active Substance: VENLAFAXINE HYDROCHLORIDE
     Indication: DEPRESSION
     Dosage: 225 MG, CAPSULE ONCE A DAY IN THE MORNING
     Route: 048
     Dates: end: 201606
  2. SINGULAIR [Concomitant]
     Active Substance: MONTELUKAST SODIUM
     Indication: HYPERSENSITIVITY
  3. KETAMINE [Concomitant]
     Active Substance: KETAMINE
     Indication: PAIN
     Dosage: 50 MG/ML NASAL SPRAY PRN
     Dates: start: 20160227
  4. EFFEXOR XR [Suspect]
     Active Substance: VENLAFAXINE HYDROCHLORIDE
     Indication: POST-TRAUMATIC STRESS DISORDER
     Dosage: 37.5 MG, 1X/DAY
     Route: 048
     Dates: start: 20160620
  5. SINGULAIR [Concomitant]
     Active Substance: MONTELUKAST SODIUM
     Indication: ASTHMA
     Dosage: 10 MG, 1X/DAY
     Route: 048
     Dates: start: 2014
  6. IMITREX [Concomitant]
     Active Substance: SUMATRIPTAN SUCCINATE
     Indication: NERVOUS SYSTEM DISORDER
     Dosage: 100 MG, AS NEEDED (1 TABLET AS NEEDED)
     Route: 048
     Dates: start: 201501, end: 20160322
  7. LEVOTHYROXINE. [Concomitant]
     Active Substance: LEVOTHYROXINE
     Indication: HYPOTHYROIDISM
     Dosage: 75 MCG TABLET ONCE A DAY
     Route: 048
     Dates: start: 2008
  8. LIOTHYRONINE SODIUM. [Concomitant]
     Active Substance: LIOTHYRONINE SODIUM
     Indication: HYPOTHYROIDISM
     Dosage: 5 MCG TABLET TWICE A DAY
     Route: 048
     Dates: start: 2012
  9. FELODIPINE. [Concomitant]
     Active Substance: FELODIPINE
     Indication: HYPERTENSION
     Dosage: 5 MG, 1X/DAY
     Route: 048
     Dates: start: 2006
  10. VALIUM [Concomitant]
     Active Substance: DIAZEPAM
     Indication: MUSCLE SPASMS
     Dosage: 5 MG TABLET PRN
     Route: 048
     Dates: start: 20160206
  11. BENADRYL [Concomitant]
     Active Substance: DIPHENHYDRAMINE HYDROCHLORIDE
     Indication: NEUROLOGICAL SYMPTOM
     Dosage: 25 MG 2 CAPSULES AS NEEDED
     Route: 048
     Dates: start: 20160309
  12. OXCARBAZEPINE. [Concomitant]
     Active Substance: OXCARBAZEPINE
     Indication: NERVOUS SYSTEM DISORDER
     Dosage: 150 MG, 2X/DAY
     Route: 048
     Dates: start: 201504
  13. PROMETHAZINE [Concomitant]
     Active Substance: PROMETHAZINE\PROMETHAZINE HYDROCHLORIDE
     Indication: NEUROLOGICAL SYMPTOM
     Dosage: 25 MG SUPPOSITORY PRN PER RECTUM
     Route: 054
     Dates: start: 20160309

REACTIONS (23)
  - Diarrhoea [Not Recovered/Not Resolved]
  - Crying [Recovering/Resolving]
  - Agitation [Recovering/Resolving]
  - Dysstasia [Recovering/Resolving]
  - Serotonin syndrome [Recovering/Resolving]
  - Coordination abnormal [Recovering/Resolving]
  - Muscle spasms [Recovering/Resolving]
  - Nerve injury [Unknown]
  - Movement disorder [Unknown]
  - Neuralgia [Recovering/Resolving]
  - Anger [Recovering/Resolving]
  - Eye pain [Not Recovered/Not Resolved]
  - Gait disturbance [Recovered/Resolved with Sequelae]
  - Body temperature fluctuation [Recovered/Resolved]
  - Tremor [Not Recovered/Not Resolved]
  - Vertigo [Unknown]
  - Cold sweat [Recovering/Resolving]
  - Intentional product misuse [Unknown]
  - Neuropathy peripheral [Recovering/Resolving]
  - Drug withdrawal syndrome [Not Recovered/Not Resolved]
  - Blood pressure fluctuation [Unknown]
  - Migraine [Recovering/Resolving]
  - Nausea [Recovering/Resolving]

NARRATIVE: CASE EVENT DATE: 2013
